FAERS Safety Report 7290347 (Version 17)
Quarter: 2016Q1

REPORT INFORMATION
  Report Type: Report from Study
  Country: CA (occurrence: CA)
  Receive Date: 20100223
  Receipt Date: 20160202
  Transmission Date: 20160526
  Serious: Yes (Hospitalization, Other)
  Sender: FDA-Public Use
  Company Number: PHHY2010CA08093

PATIENT
  Age: 59 Year
  Sex: Male

DRUGS (2)
  1. SANDOSTATIN LAR DEPOT [Suspect]
     Active Substance: OCTREOTIDE ACETATE
     Indication: CARCINOID TUMOUR OF THE SMALL BOWEL
     Dosage: 30 MG, QMO ( EVERY 4 WEEKS)
     Route: 030
     Dates: start: 20091214
  2. SANDOSTATIN LAR DEPOT [Suspect]
     Active Substance: OCTREOTIDE ACETATE
     Dosage: 40 MG, QMO
     Route: 030
     Dates: end: 20151201

REACTIONS (33)
  - Metastases to liver [Unknown]
  - Eating disorder [Unknown]
  - Chest pain [Recovering/Resolving]
  - Bladder malposition acquired [Unknown]
  - Headache [Recovering/Resolving]
  - Mass [Unknown]
  - Abdominal pain [Recovering/Resolving]
  - Weight decreased [Unknown]
  - Arthralgia [Unknown]
  - Bladder dilatation [Unknown]
  - Gait disturbance [Unknown]
  - Pain [Unknown]
  - Asthenia [Unknown]
  - Respiratory failure [Unknown]
  - Malignant neoplasm progression [Unknown]
  - Diarrhoea [Recovered/Resolved]
  - Vomiting [Unknown]
  - Bowel movement irregularity [Unknown]
  - Fall [Unknown]
  - Joint injury [Unknown]
  - Influenza [Unknown]
  - Heart rate decreased [Unknown]
  - Pollakiuria [Unknown]
  - Flatulence [Not Recovered/Not Resolved]
  - Blood pressure increased [Unknown]
  - Intestinal obstruction [Unknown]
  - Prostatomegaly [Unknown]
  - Gastrointestinal disorder [Unknown]
  - Abdominal neoplasm [Unknown]
  - Emotional distress [Unknown]
  - Malaise [Unknown]
  - Dyspnoea [Unknown]
  - Dizziness [Unknown]

NARRATIVE: CASE EVENT DATE: 20100210
